FAERS Safety Report 20539125 (Version 1)
Quarter: 2022Q1

REPORT INFORMATION
  Report Type: Report from Study
  Country: GB (occurrence: GB)
  Receive Date: 20220302
  Receipt Date: 20220302
  Transmission Date: 20220423
  Serious: Yes (Hospitalization)
  Sender: FDA-Public Use
  Company Number: GB-ROCHE-1725033

PATIENT
  Age: 35 Year
  Sex: Female

DRUGS (47)
  1. DOCETAXEL [Suspect]
     Active Substance: DOCETAXEL
     Indication: HER2 positive breast cancer
     Dosage: 720 MG, EVERY 3 WEEKS (6 CYCLES PER REGIMEN)
     Route: 042
     Dates: start: 20151020, end: 20151223
  2. DOCETAXEL [Suspect]
     Active Substance: DOCETAXEL
     Dosage: 110 MG, EVERY 3 WEEKS
     Route: 058
     Dates: start: 20151223, end: 20160203
  3. PERTUZUMAB [Suspect]
     Active Substance: PERTUZUMAB
     Indication: HER2 positive breast cancer
     Dosage: 90 ML, SINGLE LOADING DOSE
     Route: 042
     Dates: start: 20151020, end: 20151020
  4. PERTUZUMAB [Suspect]
     Active Substance: PERTUZUMAB
     Dosage: 420 MG, EVERY 3 WEEKS MAINTENANCE DOSE
     Route: 042
     Dates: start: 20151111, end: 20160203
  5. TRASTUZUMAB [Suspect]
     Active Substance: TRASTUZUMAB
     Indication: HER2 positive breast cancer
     Dosage: 525 MG SINGLE DOSE
     Route: 042
     Dates: start: 20151022, end: 20151022
  6. TRASTUZUMAB [Suspect]
     Active Substance: TRASTUZUMAB
     Dosage: 399 MG, EVERY 3 WEEKS (6 CYCLES PER REGIMEN)
     Route: 042
     Dates: start: 20151111, end: 20160203
  7. CHLORPHENIRAMINE MALEATE [Concomitant]
     Active Substance: CHLORPHENIRAMINE MALEATE
     Indication: Drug hypersensitivity
     Dosage: 10 MG FOR ONE DAY ONLY
     Route: 042
     Dates: start: 20160113, end: 20160113
  8. CHLORPHENIRAMINE MALEATE [Concomitant]
     Active Substance: CHLORPHENIRAMINE MALEATE
     Dosage: 10 MG FOR ONE DAY ONLY
     Route: 058
     Dates: start: 20151111, end: 20151111
  9. CHLORPHENIRAMINE MALEATE [Concomitant]
     Active Substance: CHLORPHENIRAMINE MALEATE
     Dosage: 10 MG FOR ONE DAY ONLY
     Route: 042
     Dates: start: 20151223, end: 20151223
  10. CHLORPHENIRAMINE MALEATE [Concomitant]
     Active Substance: CHLORPHENIRAMINE MALEATE
     Dosage: 10 MG
     Route: 058
     Dates: start: 20151020, end: 20151020
  11. CHLORPHENIRAMINE MALEATE [Concomitant]
     Active Substance: CHLORPHENIRAMINE MALEATE
     Dosage: 10 MG FOR ONE DAY ONLY
     Route: 042
     Dates: start: 20151202, end: 20151202
  12. CODEINE [Concomitant]
     Active Substance: CODEINE
     Dosage: 30 MG
     Route: 048
     Dates: start: 20160519, end: 20160524
  13. CYCLIZINE [Concomitant]
     Active Substance: CYCLIZINE
     Dosage: 50 MG, 3X/DAY
     Route: 048
     Dates: start: 20160113, end: 20160117
  14. CYCLIZINE [Concomitant]
     Active Substance: CYCLIZINE
     Dosage: 50 MG, 3X/DAY
     Route: 048
     Dates: start: 20151223, end: 20160105
  15. DALTEPARIN [Concomitant]
     Active Substance: DALTEPARIN
     Dosage: 500 UNITS
     Route: 058
     Dates: start: 20151120, end: 20151120
  16. DENOSUMAB [Concomitant]
     Active Substance: DENOSUMAB
     Dosage: 120 MG
     Route: 058
     Dates: start: 20151016, end: 20160316
  17. DEXAMETHASONE [Concomitant]
     Active Substance: DEXAMETHASONE
     Dosage: 8 MG, 2X/DAY
     Route: 048
     Dates: start: 20160518, end: 20160527
  18. DEXAMETHASONE [Concomitant]
     Active Substance: DEXAMETHASONE
     Dosage: 8 MG, 2X/DAY
     Route: 048
     Dates: start: 20151111, end: 20151113
  19. DEXAMETHASONE [Concomitant]
     Active Substance: DEXAMETHASONE
     Dosage: 8 MG, 2X/DAY
     Route: 048
     Dates: start: 20160202, end: 20160204
  20. DEXAMETHASONE [Concomitant]
     Active Substance: DEXAMETHASONE
     Dosage: 16 TABLET
     Route: 048
     Dates: start: 20151022, end: 20151022
  21. DEXAMETHASONE [Concomitant]
     Active Substance: DEXAMETHASONE
     Dosage: 8 MG, 2X/DAY
     Route: 048
     Dates: start: 20151223, end: 20151225
  22. DEXAMETHASONE [Concomitant]
     Active Substance: DEXAMETHASONE
     Dosage: 8 MG, 2X/DAY
     Route: 048
     Dates: start: 20160113, end: 20160115
  23. DIAMORPHINE [Concomitant]
     Active Substance: DIAMORPHINE
     Indication: Disease progression
     Dosage: UNK
     Route: 058
     Dates: start: 20160521, end: 20160526
  24. FILGRASTIM [Concomitant]
     Active Substance: FILGRASTIM
     Indication: HER2 positive breast cancer
     Dosage: 30 MU, 1X/DAY
     Route: 058
     Dates: start: 20151020, end: 20151025
  25. HALOPERIDOL [Concomitant]
     Active Substance: HALOPERIDOL
     Indication: Agitation
     Dosage: 1 MG EVERY 4 HOURS
     Route: 058
     Dates: start: 20160524, end: 20160524
  26. HALOPERIDOL [Concomitant]
     Active Substance: HALOPERIDOL
     Dosage: 1 MG EVERY 4 HOURS
     Route: 058
     Dates: start: 20160526, end: 20160526
  27. HYDROCORTISONE [Concomitant]
     Active Substance: HYDROCORTISONE
     Indication: Hypersensitivity
     Dosage: 100 MG FOR ONE DAY ONLY
     Route: 042
     Dates: start: 20151202, end: 20151202
  28. HYDROCORTISONE [Concomitant]
     Active Substance: HYDROCORTISONE
     Dosage: 100 MG FOR ONE DAY ONLY
     Route: 058
     Dates: start: 20151111, end: 20151111
  29. HYDROCORTISONE [Concomitant]
     Active Substance: HYDROCORTISONE
     Dosage: 100 MG FOR ONE DAY ONLY
     Route: 042
     Dates: start: 20151223, end: 20151223
  30. HYDROCORTISONE [Concomitant]
     Active Substance: HYDROCORTISONE
     Dosage: 100 MG FOR ONE DAY ONLY
     Route: 042
     Dates: start: 20160113, end: 20160113
  31. HYDROCORTISONE [Concomitant]
     Active Substance: HYDROCORTISONE
     Dosage: 100 MG
     Route: 058
     Dates: start: 20151020, end: 20151020
  32. BUTYLSCOPOLAMINE BROMIDE [Concomitant]
     Active Substance: BUTYLSCOPOLAMINE BROMIDE
     Indication: Disease progression
     Dosage: 20 MG EVERY 4 HOURS
     Route: 058
     Dates: start: 20160520, end: 20160527
  33. LANSOPRAZOLE [Concomitant]
     Active Substance: LANSOPRAZOLE
     Indication: Disease progression
     Dosage: 30 MG
     Route: 048
     Dates: start: 20160518, end: 20160526
  34. METOCLOPRAMIDE [Concomitant]
     Active Substance: METOCLOPRAMIDE
     Dosage: 10 MG, 3X/DAY
     Route: 048
     Dates: start: 20151117, end: 20151120
  35. METOCLOPRAMIDE [Concomitant]
     Active Substance: METOCLOPRAMIDE
     Dosage: 10 MG
     Route: 048
     Dates: start: 20151020
  36. ONDANSETRON [Concomitant]
     Active Substance: ONDANSETRON
     Dosage: 10 MG
     Route: 048
     Dates: start: 20151020, end: 20151020
  37. ONDANSETRON [Concomitant]
     Active Substance: ONDANSETRON
     Dosage: 8 MG FOR ONE DAY ONLY
     Route: 048
     Dates: start: 20151111, end: 20151111
  38. ONDANSETRON [Concomitant]
     Active Substance: ONDANSETRON
     Dosage: 8 MG FOR ONE DAY ONLY
     Route: 048
     Dates: start: 20151202, end: 20151202
  39. ONDANSETRON [Concomitant]
     Active Substance: ONDANSETRON
     Dosage: 8 MG FOR ONE DAY ONLY
     Route: 048
     Dates: start: 20151223, end: 20151223
  40. ONDANSETRON [Concomitant]
     Active Substance: ONDANSETRON
     Dosage: 8 MG FOR ONE DAY ONLY
     Route: 048
     Dates: start: 20160203, end: 20160203
  41. ACETAMINOPHEN [Concomitant]
     Active Substance: ACETAMINOPHEN
     Dosage: 1 G FOR ONE DAY
     Route: 048
     Dates: start: 20160203, end: 20160203
  42. ACETAMINOPHEN [Concomitant]
     Active Substance: ACETAMINOPHEN
     Dosage: 1 G FOR ONE DAY
     Route: 048
     Dates: start: 20151111, end: 20151111
  43. ACETAMINOPHEN [Concomitant]
     Active Substance: ACETAMINOPHEN
     Dosage: 1 G, 4X/DAY
     Route: 048
     Dates: start: 20160517, end: 20160527
  44. ACETAMINOPHEN [Concomitant]
     Active Substance: ACETAMINOPHEN
     Dosage: 1 G FOR ONE DAY
     Route: 048
     Dates: start: 20151223, end: 20151223
  45. ACETAMINOPHEN [Concomitant]
     Active Substance: ACETAMINOPHEN
     Dosage: 1 G, 4X/DAY FOR ONE DAY
     Route: 048
     Dates: start: 20151117, end: 20151119
  46. ACETAMINOPHEN [Concomitant]
     Active Substance: ACETAMINOPHEN
     Dosage: 1 G, 2X/DAY
     Route: 048
     Dates: start: 20151120, end: 20151120
  47. PIPERACILLIN SODIUM\TAZOBACTAM SODIUM [Concomitant]
     Active Substance: PIPERACILLIN SODIUM\TAZOBACTAM SODIUM
     Dosage: 4.5 G, 3X/DAY
     Route: 042
     Dates: start: 20151117, end: 20151120

REACTIONS (3)
  - Neutropenic sepsis [Recovered/Resolved]
  - Pyrexia [Recovered/Resolved]
  - Agitation [Recovered/Resolved]

NARRATIVE: CASE EVENT DATE: 20151229
